FAERS Safety Report 4921284-7 (Version None)
Quarter: 2006Q1

REPORT INFORMATION
  Report Type: 
  Country: None (occurrence: None)
  Receive Date: 20060221
  Receipt Date: 20060214
  Transmission Date: 20060701
  Serious: Yes (Hospitalization)
  Sender: FDA-Public Use
  Company Number: 2003156414DE

PATIENT
  Age: 62 Year
  Sex: Male

DRUGS (7)
  1. GENOTROPIN [Suspect]
     Indication: HYPOPITUITARISM
     Dosage: SEE IMAGE
     Route: 058
     Dates: start: 20000126, end: 20020227
  2. GENOTROPIN [Suspect]
     Indication: HYPOPITUITARISM
     Dosage: SEE IMAGE
     Route: 058
     Dates: start: 20030117, end: 20030701
  3. HYDEOCORTISONE (HYDROCORTISONE) [Concomitant]
  4. TESTOSTERONE (TESTESTERONE) [Concomitant]
  5. LEVOTHYROXINE SODIUM [Concomitant]
  6. MINIRIN ^AVENTIS PHARMA^ (DESMOPRESSIN ACETATE) [Concomitant]
  7. DESMOPRESSIN ACETATE [Concomitant]

REACTIONS (1)
  - NEOPLASM PROGRESSION [None]
